FAERS Safety Report 24033439 (Version 1)
Quarter: 2024Q3

REPORT INFORMATION
  Report Type: Spontaneous
  Country: US (occurrence: US)
  Receive Date: 20240701
  Receipt Date: 20240701
  Transmission Date: 20241016
  Serious: No
  Sender: UCB
  Company Number: US-UCBSA-2023050331

PATIENT
  Age: 54 Year
  Sex: Male

DRUGS (12)
  1. MIDAZOLAM [Suspect]
     Active Substance: MIDAZOLAM
     Indication: Nerve block
     Dosage: 2 MILLIGRAM
  2. MIDAZOLAM [Suspect]
     Active Substance: MIDAZOLAM
     Indication: Off label use
  3. NOREPINEPHRINE [Concomitant]
     Active Substance: NOREPINEPHRINE\NOREPINEPHRINE BITARTRATE
     Indication: Product used for unknown indication
     Dosage: REQUIRING ESCALATING DOSES
  4. NOREPINEPHRINE [Concomitant]
     Active Substance: NOREPINEPHRINE\NOREPINEPHRINE BITARTRATE
     Dosage: 2 MCG/MIN
  5. URIDINE TRIACETATE [Concomitant]
     Active Substance: URIDINE TRIACETATE
     Indication: Toxicity to various agents
     Dosage: UNK
  6. BUPIVACAINE [Concomitant]
     Active Substance: BUPIVACAINE\BUPIVACAINE HYDROCHLORIDE
     Indication: Anaesthesia
     Dosage: 15 MILLILITER
  7. BUPIVACAINE [Concomitant]
     Active Substance: BUPIVACAINE\BUPIVACAINE HYDROCHLORIDE
     Dosage: 10 MILLILITER
  8. LIDOCAINE [Concomitant]
     Active Substance: LIDOCAINE
     Indication: Anaesthesia
     Dosage: 5 MILLILITER 2%
  9. PROPOFOL [Concomitant]
     Active Substance: PROPOFOL
     Indication: Anaesthesia
     Dosage: 80 MCG/KG/MIN
  10. REMIFENTANIL [Concomitant]
     Active Substance: REMIFENTANIL
     Indication: Anaesthesia
     Dosage: 0.03 MCG/KG/MIN
  11. FENTANYL [Concomitant]
     Active Substance: FENTANYL\FENTANYL CITRATE
     Indication: Anaesthesia
     Dosage: 100 MICROGRAM
  12. HYDROMORPHONE [Concomitant]
     Active Substance: HYDROMORPHONE
     Indication: Anaesthesia
     Dosage: 1 MILLIGRAM

REACTIONS (1)
  - No adverse event [Unknown]
